FAERS Safety Report 25798975 (Version 1)
Quarter: 2025Q3

REPORT INFORMATION
  Report Type: Spontaneous
  Country: CN (occurrence: CN)
  Receive Date: 20250913
  Receipt Date: 20250913
  Transmission Date: 20251021
  Serious: Yes (Other)
  Sender: ACCORD
  Company Number: CN-Accord-503978

PATIENT
  Age: 66 Year
  Sex: Male
  Weight: 67 kg

DRUGS (20)
  1. FLUOROURACIL [Suspect]
     Active Substance: FLUOROURACIL
     Indication: Metastatic gastric cancer
     Dosage: 400 MG ON DAY 1, FOLLOWED BY 200 MG ON DAYS 1-2, REPEATED EVERY 2 WEEKS UP TO 8 CYCLES
     Dates: start: 202010, end: 2021
  2. OXALIPLATIN [Suspect]
     Active Substance: OXALIPLATIN
     Indication: Metastatic gastric cancer
     Dosage: ON DAY 1, REPEATED EVERY 2 WEEKS UP TO EIGHT CYCLES
     Dates: start: 202010, end: 2021
  3. LEUCOVORIN CALCIUM [Suspect]
     Active Substance: LEUCOVORIN CALCIUM
     Indication: Metastatic gastric cancer
     Dosage: ON DAY 1, REPEATED EVERY 2 WEEKS UP TO EIGHT CYCLES
     Dates: start: 202010, end: 2021
  4. NIVOLUMAB [Concomitant]
     Active Substance: NIVOLUMAB
     Indication: Metastatic gastric cancer
     Dosage: ON DAY 1, REPEATED EVERY 2 WEEKS UP TO EIGHT CYCLES
     Dates: start: 202010
  5. FLUOROURACIL [Suspect]
     Active Substance: FLUOROURACIL
     Indication: Metastases to spleen
     Dosage: 400 MG ON DAY 1, FOLLOWED BY 200 MG ON DAYS 1-2, REPEATED EVERY 2 WEEKS UP TO 8 CYCLES
     Dates: start: 202010, end: 2021
  6. FLUOROURACIL [Suspect]
     Active Substance: FLUOROURACIL
     Indication: Metastases to pancreas
     Dosage: 400 MG ON DAY 1, FOLLOWED BY 200 MG ON DAYS 1-2, REPEATED EVERY 2 WEEKS UP TO 8 CYCLES
     Dates: start: 202010, end: 2021
  7. FLUOROURACIL [Suspect]
     Active Substance: FLUOROURACIL
     Indication: Metastases to liver
     Dosage: 400 MG ON DAY 1, FOLLOWED BY 200 MG ON DAYS 1-2, REPEATED EVERY 2 WEEKS UP TO 8 CYCLES
     Dates: start: 202010, end: 2021
  8. FLUOROURACIL [Suspect]
     Active Substance: FLUOROURACIL
     Indication: Metastases to lymph nodes
     Dosage: 400 MG ON DAY 1, FOLLOWED BY 200 MG ON DAYS 1-2, REPEATED EVERY 2 WEEKS UP TO 8 CYCLES
     Dates: start: 202010, end: 2021
  9. OXALIPLATIN [Suspect]
     Active Substance: OXALIPLATIN
     Indication: Metastases to pancreas
     Dosage: ON DAY 1, REPEATED EVERY 2 WEEKS UP TO EIGHT CYCLES
     Dates: start: 202010, end: 2021
  10. OXALIPLATIN [Suspect]
     Active Substance: OXALIPLATIN
     Indication: Metastases to spleen
     Dosage: ON DAY 1, REPEATED EVERY 2 WEEKS UP TO EIGHT CYCLES
     Dates: start: 202010, end: 2021
  11. OXALIPLATIN [Suspect]
     Active Substance: OXALIPLATIN
     Indication: Metastases to liver
     Dosage: ON DAY 1, REPEATED EVERY 2 WEEKS UP TO EIGHT CYCLES
     Dates: start: 202010, end: 2021
  12. OXALIPLATIN [Suspect]
     Active Substance: OXALIPLATIN
     Indication: Metastases to lymph nodes
     Dosage: ON DAY 1, REPEATED EVERY 2 WEEKS UP TO EIGHT CYCLES
     Dates: start: 202010, end: 2021
  13. LEUCOVORIN CALCIUM [Suspect]
     Active Substance: LEUCOVORIN CALCIUM
     Indication: Metastases to spleen
     Dosage: ON DAY 1, REPEATED EVERY 2 WEEKS UP TO EIGHT CYCLES
     Dates: start: 202010, end: 2021
  14. LEUCOVORIN CALCIUM [Suspect]
     Active Substance: LEUCOVORIN CALCIUM
     Indication: Metastases to pancreas
     Dosage: ON DAY 1, REPEATED EVERY 2 WEEKS UP TO EIGHT CYCLES
     Dates: start: 202010, end: 2021
  15. LEUCOVORIN CALCIUM [Suspect]
     Active Substance: LEUCOVORIN CALCIUM
     Indication: Metastases to liver
     Dosage: ON DAY 1, REPEATED EVERY 2 WEEKS UP TO EIGHT CYCLES
     Dates: start: 202010, end: 2021
  16. LEUCOVORIN CALCIUM [Suspect]
     Active Substance: LEUCOVORIN CALCIUM
     Indication: Metastases to lymph nodes
     Dosage: ON DAY 1, REPEATED EVERY 2 WEEKS UP TO EIGHT CYCLES
     Dates: start: 202010, end: 2021
  17. NIVOLUMAB [Concomitant]
     Active Substance: NIVOLUMAB
     Indication: Metastases to spleen
     Dosage: ON DAY 1, REPEATED EVERY 2 WEEKS UP TO EIGHT CYCLES
     Dates: start: 202010
  18. NIVOLUMAB [Concomitant]
     Active Substance: NIVOLUMAB
     Indication: Metastases to pancreas
     Dosage: ON DAY 1, REPEATED EVERY 2 WEEKS UP TO EIGHT CYCLES
     Dates: start: 202010
  19. NIVOLUMAB [Concomitant]
     Active Substance: NIVOLUMAB
     Indication: Metastases to liver
     Dosage: ON DAY 1, REPEATED EVERY 2 WEEKS UP TO EIGHT CYCLES
     Dates: start: 202010
  20. NIVOLUMAB [Concomitant]
     Active Substance: NIVOLUMAB
     Indication: Metastases to lymph nodes
     Dosage: ON DAY 1, REPEATED EVERY 2 WEEKS UP TO EIGHT CYCLES
     Dates: start: 202010

REACTIONS (4)
  - White blood cell count decreased [Unknown]
  - Nausea [Unknown]
  - Vomiting [Unknown]
  - Neutrophil count decreased [Unknown]
